FAERS Safety Report 5078879-2 (Version None)
Quarter: 2006Q3

REPORT INFORMATION
  Report Type: 
  Country: None (occurrence: None)
  Receive Date: 20060809
  Receipt Date: 20060809
  Transmission Date: 20061208
  Serious: No
  Sender: FDA-Public Use
  Company Number: None

PATIENT
  Sex: Female
  Weight: 49.8957 kg

DRUGS (1)
  1. ALDACTONE [Suspect]
     Dosage: 100 MG 1 PO BID

REACTIONS (2)
  - ABDOMINAL DISCOMFORT [None]
  - COUGH [None]
